FAERS Safety Report 8416471-X (Version None)
Quarter: 2012Q2

REPORT INFORMATION
  Report Type: 
  Country: None (occurrence: None)
  Receive Date: 20120530
  Receipt Date: 20120523
  Transmission Date: 20120825
  Serious: Yes (Other)
  Sender: FDA-Public Use
  Company Number: 2012SP023204

PATIENT
  Age: 48 Year
  Sex: Female
  Weight: 70 kg

DRUGS (11)
  1. NEULASTA [Suspect]
     Indication: CHEMOTHERAPY
     Dosage: 6 MG, UNK, SC
     Route: 058
  2. DEXAMETHASONE [Suspect]
     Indication: PRODUCT USED FOR UNKNOWN INDICATION
     Dosage: 4 MG, BID, PO
     Route: 048
  3. GRANISETRON [Suspect]
     Indication: PRODUCT USED FOR UNKNOWN INDICATION
     Dosage: 1 MG, BID, PO
     Route: 048
  4. DOMPERIDONE (DOMPERIDONE) [Suspect]
     Indication: PRODUCT USED FOR UNKNOWN INDICATION
     Dosage: 20 MG, UNK, PO
     Route: 048
  5. BIOTENE [Concomitant]
  6. DOCUSATE [Concomitant]
  7. CHLORPHENIRAMINE MALEATE [Suspect]
     Indication: PRODUCT USED FOR UNKNOWN INDICATION
     Dosage: 10 MG, UNK, IV
     Route: 042
  8. DEXAMETHASONE SODIUM PHOSPHATE [Suspect]
     Indication: PRODUCT USED FOR UNKNOWN INDICATION
     Dosage: 20 MG, UNK, IV
     Route: 042
  9. PACLITAXEL [Suspect]
     Indication: BREAST CANCER
     Dosage: 315;300 MG, UNK, IV
     Route: 042
     Dates: start: 20110524, end: 20110607
  10. PACLITAXEL [Suspect]
     Indication: BREAST CANCER
     Dosage: 315;300 MG, UNK, IV
     Route: 042
     Dates: start: 20110621, end: 20110705
  11. RANITIDINE [Suspect]
     Dosage: 50 MG, UNK, IV
     Route: 042

REACTIONS (5)
  - FATIGUE [None]
  - CHEST PAIN [None]
  - SENSATION OF PRESSURE [None]
  - DYSPNOEA [None]
  - OBSTRUCTIVE AIRWAYS DISORDER [None]
